FAERS Safety Report 8811613 (Version 1)
Quarter: 2012Q4

REPORT INFORMATION
  Report Type: 
  Country: US (occurrence: None)
  Receive Date: 20120925
  Receipt Date: 20120925
  Transmission Date: 20130627
  Serious: Yes (Hospitalization)
  Sender: FDA-Public Use
  Company Number: None

PATIENT
  Sex: Male
  Weight: 91.4 kg

DRUGS (20)
  1. BEVACIZUMAB [Suspect]
  2. CARBOPLATIN [Suspect]
  3. PACLITAXEL (TAXOL) [Suspect]
  4. FLUNISOLIDE NASL [Concomitant]
  5. FOLIC ACID [Concomitant]
  6. FORMOTEROL FUMARATE (FORADIL AEROLIZER INHL) [Concomitant]
  7. GUAIFENESIN [Concomitant]
  8. HYDROCODONE-ACETAMINOPHEN (NORCO) [Concomitant]
  9. MOMETASONE FUROATE (ASMANEX TWISTHALER INHL) [Concomitant]
  10. SIMVASTATIN [Concomitant]
  11. ASPIRIN [Concomitant]
  12. DEXAMETHASONE (DECADRON) [Concomitant]
  13. LACTULOSE (ENULOSE) [Concomitant]
  14. ONDANSETRON (ZOFRAN) [Concomitant]
  15. OXYCODONE (OXYCONTIN) [Concomitant]
  16. OXYCODONE (ROXICODONE) [Concomitant]
  17. POLYETHYLENE GLYCOL (MIRALAX) [Concomitant]
  18. PROCHLORPERAZINE (COMPAZINE) [Concomitant]
  19. TAMSULOSIN (FLOMAX [Concomitant]
  20. TIOTROPIUM BROMIDE (SPIRIVA WITH HANDIHALER) [Concomitant]

REACTIONS (12)
  - Dyspnoea [None]
  - Confusional state [None]
  - Oxygen saturation decreased [None]
  - Infrequent bowel movements [None]
  - Schwannoma [None]
  - Metastases to central nervous system [None]
  - Dementia [None]
  - Tremor [None]
  - Abdominal distension [None]
  - Decreased appetite [None]
  - Abdominal pain [None]
  - Lethargy [None]
